FAERS Safety Report 7583110-X (Version None)
Quarter: 2011Q2

REPORT INFORMATION
  Report Type: 
  Country: None (occurrence: None)
  Receive Date: 20110623
  Receipt Date: 20110607
  Transmission Date: 20111010
  Serious: Yes (Other)
  Sender: FDA-Public Use
  Company Number: DSA_46816_2011

PATIENT

DRUGS (2)
  1. ZOVIRAX [Suspect]
     Indication: HERPES ZOSTER
     Dosage: (DF INTRAOCULAR)
     Route: 031
  2. VALACYCLOVIR HYDROCHLORIDE [Concomitant]

REACTIONS (2)
  - VITH NERVE DISORDER [None]
  - ULCERATIVE KERATITIS [None]
